FAERS Safety Report 4701231-3 (Version None)
Quarter: 2005Q2

REPORT INFORMATION
  Report Type: 
  Country: None (occurrence: None)
  Receive Date: 20050624
  Receipt Date: 20050615
  Transmission Date: 20051028
  Serious: Yes (Other)
  Sender: FDA-Public Use
  Company Number: 2005088786

PATIENT
  Sex: Female
  Weight: 61.2356 kg

DRUGS (1)
  1. NEURONTIN [Suspect]
     Indication: COMPLEX REGIONAL PAIN SYNDROME
     Dosage: ORAL
     Route: 048
     Dates: start: 20021001

REACTIONS (15)
  - AMNESIA [None]
  - BREAST MASS [None]
  - CONVULSION [None]
  - COORDINATION ABNORMAL [None]
  - CRYING [None]
  - DEPRESSION [None]
  - DIFFICULTY IN WALKING [None]
  - DRUG INEFFECTIVE [None]
  - DYSARTHRIA [None]
  - HYPOAESTHESIA [None]
  - MOOD SWINGS [None]
  - PAIN [None]
  - PAIN IN EXTREMITY [None]
  - SUICIDAL IDEATION [None]
  - THINKING ABNORMAL [None]
